FAERS Safety Report 9933122 (Version 1)
Quarter: 2014Q1

REPORT INFORMATION
  Report Type: Spontaneous
  Country: US (occurrence: US)
  Receive Date: 20140228
  Receipt Date: 20140228
  Transmission Date: 20141002
  Serious: Yes (Other)
  Sender: FDA-Public Use
  Company Number: US-GLAXOSMITHKLINE-A1050026A

PATIENT
  Age: 30 Year
  Sex: Female

DRUGS (2)
  1. LAMOTRIGINE [Suspect]
     Indication: CONVULSION
     Dosage: 300MCG TWICE PER DAY
     Route: 048
     Dates: start: 2011
  2. NO CONCURRENT MEDICATION [Concomitant]

REACTIONS (1)
  - Convulsion [Unknown]
